FAERS Safety Report 10267741 (Version 1)
Quarter: 2014Q2

REPORT INFORMATION
  Report Type: Spontaneous
  Country: AU (occurrence: AU)
  Receive Date: 20140630
  Receipt Date: 20140630
  Transmission Date: 20141212
  Serious: Yes (Life-Threatening, Hospitalization)
  Sender: FDA-Public Use
  Company Number: AU-MYLANLABS-2014S1014809

PATIENT
  Age: 66 Year
  Sex: Female

DRUGS (6)
  1. METFORMIN [Suspect]
     Dosage: 3G DAILY
     Route: 065
  2. GLICLAZIDE [Concomitant]
     Dosage: 60MG DAILY
     Route: 065
  3. ASPIRIN [Concomitant]
     Dosage: 100MG DAILY
     Route: 065
  4. ATORVASTATIN [Concomitant]
     Dosage: 40MG DAILY
     Route: 065
  5. RAMIPRIL [Concomitant]
     Dosage: 10MG DAILY
     Route: 065
  6. HYDROCHLOROTHIAZIDE [Concomitant]
     Dosage: 25MG DAILY
     Route: 065

REACTIONS (4)
  - Lactic acidosis [Recovered/Resolved]
  - Cardiac arrest [Recovered/Resolved]
  - Diarrhoea [Unknown]
  - Hypophagia [Unknown]
